FAERS Safety Report 5074233-8 (Version None)
Quarter: 2006Q3

REPORT INFORMATION
  Report Type: 
  Country: None (occurrence: None)
  Receive Date: 20060714
  Receipt Date: 20060526
  Transmission Date: 20061208
  Serious: No
  Sender: FDA-Public Use
  Company Number: 2006SP002222

PATIENT
  Age: 75 Year
  Sex: Female
  Weight: 63.5036 kg

DRUGS (6)
  1. LUNESTA [Suspect]
     Indication: INSOMNIA
     Dosage: 3 MG;HS;ORAL
     Route: 048
     Dates: start: 20050101
  2. ESTROGENS CONJUGATED [Concomitant]
  3. LEVOXYL [Concomitant]
  4. HYDROXYUREA [Concomitant]
  5. SINGULAIR [Concomitant]
  6. AMBIEN [Concomitant]

REACTIONS (1)
  - INSOMNIA [None]
